FAERS Safety Report 7307543-1 (Version None)
Quarter: 2011Q1

REPORT INFORMATION
  Report Type: 
  Country: None (occurrence: None)
  Receive Date: 20110223
  Receipt Date: 20110214
  Transmission Date: 20110831
  Serious: Yes (Other)
  Sender: FDA-Public Use
  Company Number: US-BRISTOL-MYERS SQUIBB COMPANY-14932156

PATIENT
  Age: 34 Year
  Sex: Male
  Weight: 86 kg

DRUGS (10)
  1. ANAFRANIL [Suspect]
     Indication: DEPRESSION
  2. CLOBETASOL PROPIONATE [Concomitant]
     Dosage: CREAM BID TO AFFECTED AREA
     Route: 061
     Dates: start: 20090106, end: 20101208
  3. APIDRA SOLOSTAR [Concomitant]
     Dosage: 1DF=100UNIT/ML IJ SOLN
  4. KLONOPIN [Suspect]
     Dosage: TABS
     Route: 048
     Dates: start: 20090909, end: 20101015
  5. ALPRAZOLAM [Suspect]
     Dosage: TABS,1 PILL BY MOUTH
     Route: 048
     Dates: start: 20090903, end: 20100817
  6. ZYRTEC [Concomitant]
     Indication: HYPERSENSITIVITY
     Dosage: TAB,1PILL BY MOUTH
     Route: 048
     Dates: start: 20081121
  7. DEPAKOTE [Suspect]
     Route: 048
     Dates: start: 20091124, end: 20100125
  8. ABILIFY [Suspect]
     Indication: DEPRESSION
     Route: 048
     Dates: start: 20090901
  9. ALBUTEROL SULFATE [Concomitant]
     Dosage: 1DF=108MCG/ACT IN AERS.
     Route: 055
     Dates: start: 20090522, end: 20100817
  10. LANTUS [Concomitant]
     Dosage: 1DF=100UNIT/ML SOLN
     Route: 058

REACTIONS (6)
  - AKATHISIA [None]
  - RESTLESSNESS [None]
  - FEELING HOT [None]
  - MANIA [None]
  - DIABETES MELLITUS [None]
  - INSOMNIA [None]
